FAERS Safety Report 5982771-6 (Version None)
Quarter: 2008Q4

REPORT INFORMATION
  Report Type: 
  Country: None (occurrence: None)
  Receive Date: 20081205
  Receipt Date: 20081205
  Transmission Date: 20090506
  Serious: Yes (Other)
  Sender: FDA-Public Use
  Company Number: None

PATIENT
  Age: 42 Year
  Sex: Female
  Weight: 68.0396 kg

DRUGS (1)
  1. PROTOPIC [Suspect]
     Indication: BLEPHARITIS
     Dosage: TINY BEAD USED 1 TIME ONLY
     Dates: start: 20081203, end: 20081203

REACTIONS (3)
  - EYE IRRITATION [None]
  - EYELID IRRITATION [None]
  - PYREXIA [None]
